FAERS Safety Report 7382465-9 (Version None)
Quarter: 2011Q1

REPORT INFORMATION
  Report Type: 
  Country: None (occurrence: None)
  Receive Date: 20110329
  Receipt Date: 20110301
  Transmission Date: 20110831
  Serious: Yes (Hospitalization, Other)
  Sender: FDA-Public Use
  Company Number: US-BAYER-201035830NA

PATIENT
  Sex: Female
  Weight: 65.306 kg

DRUGS (13)
  1. MECLIZINE [Concomitant]
     Dosage: 12.5 MG, PRN
     Route: 048
     Dates: start: 20070516
  2. METRONIDAZOLE [Concomitant]
     Dosage: 500 MG, UNK
     Route: 048
     Dates: start: 20070817
  3. UNCODEABLE ^UNCLASSIFIABLE^ [Concomitant]
     Dosage: UNK
     Route: 048
     Dates: start: 20070817
  4. NEXIUM [Concomitant]
     Dosage: 40 MG, UNK
     Route: 048
     Dates: start: 20050109
  5. GUAIFENESIN AND PSEUDOEPHEDRINE HYDROCHLORIDE [Concomitant]
     Dosage: UNK
     Route: 048
     Dates: start: 20050629
  6. PROMETHAZINE [Concomitant]
     Dosage: 25 MG, UNK
     Route: 048
     Dates: start: 20071012
  7. YASMIN [Suspect]
     Indication: ORAL CONTRACEPTION
     Dosage: UNK UNK, QD
     Route: 048
     Dates: start: 20030101, end: 20050101
  8. YASMIN [Suspect]
     Indication: PREMENSTRUAL SYNDROME
  9. CLARITIN [Concomitant]
  10. FLUCONAZOLE [Concomitant]
     Dosage: 100 MG, UNK
     Route: 048
     Dates: start: 20070920
  11. YAZ [Suspect]
     Indication: PREMENSTRUAL SYNDROME
  12. YAZ [Suspect]
     Indication: ORAL CONTRACEPTION
     Dosage: UNK UNK, QD
     Route: 048
     Dates: start: 20060101, end: 20070101
  13. PREVPAC [Concomitant]
     Dosage: UNK
     Route: 048
     Dates: start: 20050109

REACTIONS (2)
  - GALLBLADDER DISORDER [None]
  - CHOLECYSTITIS CHRONIC [None]
